FAERS Safety Report 22955616 (Version 4)
Quarter: 2024Q4

REPORT INFORMATION
  Report Type: Spontaneous
  Country: JP (occurrence: JP)
  Receive Date: 20230918
  Receipt Date: 20241002
  Transmission Date: 20250115
  Serious: Yes (Hospitalization, Disabling)
  Sender: JOHNSON AND JOHNSON
  Company Number: JP-BAYER-2023A128827

PATIENT
  Age: 78 Year
  Sex: Male

DRUGS (2)
  1. XARELTO [Suspect]
     Active Substance: RIVAROXABAN
     Indication: Deep vein thrombosis
     Dosage: DAILY DOSE 15 MG
     Route: 048
  2. XARELTO [Suspect]
     Active Substance: RIVAROXABAN
     Indication: Pulmonary embolism

REACTIONS (3)
  - Acute kidney injury [Recovered/Resolved]
  - Paraplegia [Not Recovered/Not Resolved]
  - Spinal cord haemorrhage [Not Recovered/Not Resolved]
